FAERS Safety Report 5146755-2 (Version None)
Quarter: 2006Q4

REPORT INFORMATION
  Report Type: 
  Country: None (occurrence: None)
  Receive Date: 20061102
  Receipt Date: 20061018
  Transmission Date: 20070319
  Serious: Yes (Other)
  Sender: FDA-Public Use
  Company Number: PAR_0877_2006

PATIENT
  Sex: 0

DRUGS (1)
  1. BENZTROPINE MESYLATE [Suspect]
     Indication: SCHIZOPHRENIA
     Dosage: 0.5 MG BID PO
     Route: 048

REACTIONS (2)
  - POSTURE ABNORMAL [None]
  - RASH ERYTHEMATOUS [None]
